FAERS Safety Report 9859511 (Version 3)
Quarter: 2022Q3

REPORT INFORMATION
  Report Type: Spontaneous
  Country: US (occurrence: US)
  Receive Date: 20140131
  Receipt Date: 20220729
  Transmission Date: 20221026
  Serious: Yes (Other)
  Sender: FDA-Public Use
  Company Number: US-PFIZER INC-2014025020

PATIENT
  Age: 60 Year
  Sex: Female

DRUGS (1)
  1. ATORVASTATIN CALCIUM [Suspect]
     Active Substance: ATORVASTATIN CALCIUM
     Indication: Hypercholesterolaemia
     Dosage: 10 MG, DAILY

REACTIONS (4)
  - Ophthalmoplegia [Recovered/Resolved]
  - Paraesthesia [Recovered/Resolved]
  - Hyperreflexia [Recovered/Resolved]
  - Ataxia [Recovered/Resolved]
